FAERS Safety Report 9322936 (Version 3)
Quarter: 2014Q1

REPORT INFORMATION
  Report Type: Spontaneous
  Country: US (occurrence: US)
  Receive Date: 20130601
  Receipt Date: 20140107
  Transmission Date: 20141002
  Serious: Yes (Hospitalization)
  Sender: FDA-Public Use
  Company Number: US-ASTRAZENECA-2013SE38612

PATIENT
  Age: 61 Year
  Sex: Female
  Weight: 70.8 kg

DRUGS (26)
  1. NEXIUM [Suspect]
     Indication: CHEST PAIN
     Route: 048
     Dates: start: 2000
  2. NEXIUM [Suspect]
     Indication: DYSPEPSIA
     Route: 048
     Dates: start: 2000
  3. NEXIUM [Suspect]
     Indication: CHEST PAIN
     Route: 048
     Dates: start: 20100218
  4. NEXIUM [Suspect]
     Indication: DYSPEPSIA
     Route: 048
     Dates: start: 20100218
  5. NEXIUM [Suspect]
     Indication: CHEST PAIN
     Route: 048
     Dates: end: 2010
  6. NEXIUM [Suspect]
     Indication: DYSPEPSIA
     Route: 048
     Dates: end: 2010
  7. NEXIUM [Suspect]
     Indication: CHEST PAIN
     Route: 048
     Dates: start: 2000, end: 2013
  8. NEXIUM [Suspect]
     Indication: DYSPEPSIA
     Route: 048
     Dates: start: 2000, end: 2013
  9. PRILOSEC [Suspect]
     Route: 048
  10. PREVACID [Concomitant]
     Indication: GASTROOESOPHAGEAL REFLUX DISEASE
     Dates: start: 200712, end: 2009
  11. PREVACID [Concomitant]
     Indication: DYSPEPSIA
     Dates: start: 200712, end: 2009
  12. TUMS [Concomitant]
  13. ROLAIDS [Concomitant]
  14. ALKA SELTZER [Concomitant]
  15. MILK OF MAGNESIA [Concomitant]
  16. PEPTO-BISMOL [Concomitant]
     Dosage: TOOK AS NEEDED
  17. ROBINIROLE [Concomitant]
     Indication: RESTLESS LEGS SYNDROME
  18. CETRIZINE [Concomitant]
     Indication: MULTIPLE ALLERGIES
  19. GABAPENTIN [Concomitant]
     Indication: PAIN
  20. ZOLPIDEM [Concomitant]
     Indication: INSOMNIA
  21. FLUTICASONE [Concomitant]
     Indication: ASTHMA
  22. HYDROCODONE [Concomitant]
     Indication: PAIN
  23. AMITRIPTYLIN [Concomitant]
     Indication: DEPRESSION
  24. CYCLOBENZAPRINE [Concomitant]
     Indication: PAIN
  25. LORATADINE [Concomitant]
     Indication: HYPERSENSITIVITY
  26. HYDROCHLOROT [Concomitant]
     Indication: OEDEMA

REACTIONS (13)
  - Hernia [Unknown]
  - Dysphagia [Unknown]
  - Arthropathy [Unknown]
  - Abdominal pain upper [Unknown]
  - Osteoporosis [Unknown]
  - Bone disorder [Unknown]
  - Multiple fractures [Unknown]
  - Foot fracture [Unknown]
  - Pharyngeal disorder [Unknown]
  - Chest pain [Unknown]
  - Arthritis [Unknown]
  - Cataract [Unknown]
  - Gastrointestinal disorder [Unknown]
